FAERS Safety Report 17877028 (Version 1)
Quarter: 2020Q2

REPORT INFORMATION
  Report Type: Spontaneous
  Country: ES (occurrence: ES)
  Receive Date: 20200609
  Receipt Date: 20200609
  Transmission Date: 20200714
  Serious: Yes (Hospitalization)
  Sender: FDA-Public Use
  Company Number: NVSC2020ES114898

PATIENT
  Age: 79 Year
  Sex: Female

DRUGS (6)
  1. TORASEMIDA [Concomitant]
     Active Substance: TORSEMIDE
     Indication: SPINAL OSTEOARTHRITIS
     Dosage: 10 MG, QD
     Route: 048
     Dates: start: 20180613
  2. IBUPROFEN. [Suspect]
     Active Substance: IBUPROFEN
     Indication: OSTEOARTHRITIS
     Dosage: 600 MG, Q12H
     Route: 048
     Dates: start: 20200116, end: 20200125
  3. ACETYLSALICYLIC ACID [Suspect]
     Active Substance: ASPIRIN
     Indication: ESSENTIAL HYPERTENSION
     Dosage: 100 MG, QD
     Route: 048
     Dates: start: 20121128, end: 20200125
  4. ENALAPRIL [Concomitant]
     Active Substance: ENALAPRIL
     Indication: ESSENTIAL HYPERTENSION
     Dosage: 20 MG, QD
     Route: 048
     Dates: start: 20090206
  5. FORMODUAL [Concomitant]
     Active Substance: BECLOMETHASONE DIPROPIONATE\FORMOTEROL FUMARATE
     Indication: SPINAL OSTEOARTHRITIS
     Dosage: 1 DF, Q12H
     Route: 055
     Dates: start: 20180612
  6. ARTEDIL [Concomitant]
     Active Substance: MANIDIPINE HYDROCHLORIDE
     Indication: ESSENTIAL HYPERTENSION
     Dosage: 10 MG, QD
     Route: 048
     Dates: start: 20190830

REACTIONS (1)
  - Gastrointestinal haemorrhage [Recovered/Resolved]

NARRATIVE: CASE EVENT DATE: 20200125
